FAERS Safety Report 9301458 (Version 1)
Quarter: 2013Q2

REPORT INFORMATION
  Report Type: Report from Study
  Country: DE (occurrence: DE)
  Receive Date: 20130520
  Receipt Date: 20130520
  Transmission Date: 20140414
  Serious: Yes (Other)
  Sender: FDA-Public Use
  Company Number: DE-RB-PW/030430/808

PATIENT
  Age: 25 Year
  Sex: Female
  Weight: 84 kg

DRUGS (6)
  1. SUBUTEX [Suspect]
     Route: 060
     Dates: start: 20020702, end: 20020702
  2. SUBUTEX [Suspect]
     Indication: DRUG DEPENDENCE
     Route: 060
     Dates: start: 20020703, end: 20020703
  3. SUBUTEX [Suspect]
     Route: 060
     Dates: start: 20020704, end: 20020704
  4. SUBUTEX [Suspect]
     Route: 060
     Dates: start: 20020705, end: 20020707
  5. SUBUTEX [Suspect]
     Dosage: 6MG - 0.2 MG
     Route: 060
     Dates: start: 20020708, end: 20030119
  6. FLUPHENAZINE DECANOATE INJECTABLE SOLUTION [Concomitant]
     Indication: SUBSTANCE-INDUCED PSYCHOTIC DISORDER
     Dosage: 3ML Q2W INTRAMUSCULAR
     Route: 030
     Dates: start: 20010901, end: 20020821

REACTIONS (3)
  - Exposure during pregnancy [Recovered/Resolved]
  - Premature separation of placenta [Recovered/Resolved]
  - Stillbirth [Recovered/Resolved]
